FAERS Safety Report 20167698 (Version 3)
Quarter: 2022Q1

REPORT INFORMATION
  Report Type: Report from Study
  Country: US (occurrence: US)
  Receive Date: 20211209
  Receipt Date: 20220118
  Transmission Date: 20220424
  Serious: Yes (Other)
  Sender: FDA-Public Use
  Company Number: US-ABBVIE-21K-163-4190936-00

PATIENT
  Sex: Female

DRUGS (5)
  1. HUMIRA [Suspect]
     Active Substance: ADALIMUMAB
     Indication: Psoriatic arthropathy
     Dosage: CITRATE FREE
     Route: 058
  2. HUMIRA [Suspect]
     Active Substance: ADALIMUMAB
     Indication: Rheumatoid arthritis
  3. JANSSEN COVID-19 VACCINE [Concomitant]
     Active Substance: AD26.COV2.S
     Indication: COVID-19 immunisation
     Dosage: 1ST DOSE
     Route: 030
     Dates: start: 20210403, end: 20210403
  4. JANSSEN COVID-19 VACCINE [Concomitant]
     Active Substance: AD26.COV2.S
     Dosage: 2ND DOSE
     Route: 030
     Dates: start: 20211101, end: 20211101
  5. JANSSEN COVID-19 VACCINE [Concomitant]
     Active Substance: AD26.COV2.S
     Dosage: 3RD DOSE
     Route: 030
     Dates: start: 20211103, end: 20211103

REACTIONS (16)
  - Large intestinal obstruction [Unknown]
  - Arthrodesis [Unknown]
  - Tooth disorder [Unknown]
  - Accident [Unknown]
  - Concussion [Unknown]
  - Gait disturbance [Unknown]
  - Weight decreased [Unknown]
  - Gait inability [Unknown]
  - Tooth fracture [Unknown]
  - Pain in extremity [Unknown]
  - Gastrointestinal pain [Unknown]
  - Headache [Unknown]
  - Spinal pain [Unknown]
  - Neck pain [Unknown]
  - Arthralgia [Unknown]
  - Unevaluable event [Unknown]
